FAERS Safety Report 16749917 (Version 1)
Quarter: 2019Q3

REPORT INFORMATION
  Report Type: Spontaneous
  Country: FR (occurrence: FR)
  Receive Date: 20190828
  Receipt Date: 20190828
  Transmission Date: 20191005
  Serious: Yes (Death, Other)
  Sender: FDA-Public Use
  Company Number: FR-FRESENIUS KABI-FK201909459

PATIENT

DRUGS (2)
  1. INDOMETHACIN (MANUFACTURER UNKNOWN) [Suspect]
     Active Substance: INDOMETHACIN
     Indication: PREMATURE LABOUR
     Dosage: UNKNOWN
     Route: 064
  2. SALBUTAMOL [Suspect]
     Active Substance: ALBUTEROL
     Indication: PREMATURE LABOUR
     Dosage: UNKNOWN
     Route: 064

REACTIONS (4)
  - Amniotic cavity infection [Fatal]
  - Sepsis [Fatal]
  - Staphylococcal infection [Fatal]
  - Foetal exposure during pregnancy [Unknown]
